FAERS Safety Report 10759169 (Version 1)
Quarter: 2015Q1

REPORT INFORMATION
  Report Type: Spontaneous
  Country: US (occurrence: None)
  Receive Date: 20150202
  Receipt Date: 20150202
  Transmission Date: 20150721
  Serious: No
  Sender: FDA-Public Use
  Company Number: None

PATIENT
  Age: 70 Year
  Sex: Female
  Weight: 48.08 kg

DRUGS (4)
  1. DIFLUCAN [Suspect]
     Active Substance: FLUCONAZOLE
     Indication: OESOPHAGEAL CANDIDIASIS
     Dosage: 1 PILL; ONCE DAILY
     Route: 048
     Dates: start: 20150107, end: 20150114
  2. DIFLUCAN [Suspect]
     Active Substance: FLUCONAZOLE
     Indication: OROPHARYNGITIS FUNGAL
     Dosage: 1 PILL; ONCE DAILY
     Route: 048
     Dates: start: 20150107, end: 20150114
  3. DIFLUCAN [Suspect]
     Active Substance: FLUCONAZOLE
     Indication: ORAL CANDIDIASIS
     Dosage: 1 PILL; ONCE DAILY
     Route: 048
     Dates: start: 20150107, end: 20150114
  4. DIFLUCAN [Suspect]
     Active Substance: FLUCONAZOLE
     Indication: FUNGAL RHINITIS
     Dosage: 1 PILL; ONCE DAILY
     Route: 048
     Dates: start: 20150107, end: 20150114

REACTIONS (3)
  - Tongue discolouration [None]
  - Ageusia [None]
  - Tongue exfoliation [None]

NARRATIVE: CASE EVENT DATE: 20150107
